FAERS Safety Report 22167278 (Version 1)
Quarter: 2023Q2

REPORT INFORMATION
  Report Type: Spontaneous
  Country: TW (occurrence: TW)
  Receive Date: 20230403
  Receipt Date: 20230403
  Transmission Date: 20230721
  Serious: Yes (Other)
  Sender: FDA-Public Use
  Company Number: TW-BAYER-2023A021225

PATIENT
  Age: 74 Year
  Sex: Male

DRUGS (1)
  1. XOFIGO [Suspect]
     Active Substance: RADIUM RA-223 DICHLORIDE
     Dosage: TOTALLY 5 INJECTIONS
     Dates: start: 20220621, end: 20230119

REACTIONS (2)
  - Metastases to lung [None]
  - Colorectal cancer recurrent [None]
